FAERS Safety Report 24046663 (Version 2)
Quarter: 2024Q3

REPORT INFORMATION
  Report Type: Spontaneous
  Country: US (occurrence: US)
  Receive Date: 20240703
  Receipt Date: 20240805
  Transmission Date: 20241017
  Serious: Yes (Hospitalization, Other)
  Sender: BIOVITRUM
  Company Number: US-BIOVITRUM-2024-US-009321

PATIENT
  Age: 62 Year
  Sex: Female

DRUGS (1)
  1. VONJO [Suspect]
     Active Substance: PACRITINIB
     Indication: Myelofibrosis
     Dosage: BID
     Route: 048
     Dates: start: 20240628

REACTIONS (5)
  - Cytopenia [Unknown]
  - Condition aggravated [Unknown]
  - Off label use [Not Recovered/Not Resolved]
  - Abdominal discomfort [Unknown]
  - Gastrointestinal haemorrhage [Unknown]

NARRATIVE: CASE EVENT DATE: 20240628
